FAERS Safety Report 14250646 (Version 1)
Quarter: 2017Q4

REPORT INFORMATION
  Report Type: Spontaneous
  Country: US (occurrence: US)
  Receive Date: 20171205
  Receipt Date: 20171205
  Transmission Date: 20180321
  Serious: No
  Sender: FDA-Public Use
  Company Number: US-ENDO PHARMACEUTICALS INC-2017-000097

PATIENT
  Age: 41 Year
  Sex: Female
  Weight: 157.82 kg

DRUGS (5)
  1. ALPRAZOLAM TABLETS 0.25 MG [Suspect]
     Active Substance: ALPRAZOLAM
     Indication: ANXIETY
     Dosage: 2 DF, QHS
     Route: 048
     Dates: start: 2015
  2. LISOPRIL PLUS [Concomitant]
     Indication: HYPERTENSION
     Dosage: UNK
  3. ZOLOFT [Concomitant]
     Active Substance: SERTRALINE HYDROCHLORIDE
     Indication: DEPRESSION
     Dosage: UNK
  4. VITAMINS NOS [Concomitant]
     Active Substance: VITAMINS
     Indication: PRODUCT USED FOR UNKNOWN INDICATION
  5. LIBRAX [Concomitant]
     Active Substance: CHLORDIAZEPOXIDE HYDROCHLORIDE\CLIDINIUM BROMIDE
     Indication: IRRITABLE BOWEL SYNDROME

REACTIONS (4)
  - Nasopharyngitis [None]
  - Nasal congestion [Not Recovered/Not Resolved]
  - Bronchitis [Unknown]
  - Cough [None]

NARRATIVE: CASE EVENT DATE: 20170102
